FAERS Safety Report 5834296-6 (Version None)
Quarter: 2008Q3

REPORT INFORMATION
  Report Type: 
  Country: None (occurrence: None)
  Receive Date: 20080805
  Receipt Date: 20080731
  Transmission Date: 20090109
  Serious: Yes (Other)
  Sender: FDA-Public Use
  Company Number: PHEH2008US03271

PATIENT
  Sex: Male

DRUGS (1)
  1. TASIGNA [Suspect]
     Indication: CHRONIC MYELOID LEUKAEMIA
     Dosage: 400 MG, QAM, 200 MG QPM
     Route: 048
     Dates: start: 20080301, end: 20080429

REACTIONS (4)
  - BONE MARROW TRANSPLANT [None]
  - ELECTROCARDIOGRAM QT PROLONGED [None]
  - PLATELET COUNT DECREASED [None]
  - RASH [None]
